FAERS Safety Report 6018134-7 (Version None)
Quarter: 2008Q4

REPORT INFORMATION
  Report Type: 
  Country: None (occurrence: None)
  Receive Date: 20081223
  Receipt Date: 20081216
  Transmission Date: 20090506
  Serious: Yes (Other)
  Sender: FDA-Public Use
  Company Number: GB-ELI_LILLY_AND_COMPANY-GB200811002096

PATIENT
  Age: 51 Year
  Sex: Male

DRUGS (14)
  1. CIALIS [Suspect]
     Dosage: 20 MG, UNKNOWN
     Route: 065
     Dates: start: 20050912, end: 20051221
  2. LEVITRA [Concomitant]
     Indication: ERECTILE DYSFUNCTION
     Dosage: UNK, UNKNOWN
     Route: 065
     Dates: start: 20050901
  3. ATENOLOL [Concomitant]
     Indication: HYPERTENSION
     Dosage: UNK, UNKNOWN
     Route: 065
  4. DERMOVATE [Concomitant]
     Dosage: UNK, UNKNOWN
     Route: 065
  5. DICLOFENAC SODIUM [Concomitant]
     Dosage: UNK, UNKNOWN
     Route: 065
  6. DOVOBET [Concomitant]
     Dosage: UNK, UNKNOWN
     Route: 065
  7. LORMETAZEPAM [Concomitant]
     Dosage: UNK, UNKNOWN
     Route: 065
  8. SERTRALINE HYDROCHLORIDE [Concomitant]
     Dosage: UNK, UNKNOWN
     Route: 065
  9. MEPTID [Concomitant]
     Dosage: UNK, UNKNOWN
     Route: 065
  10. MONTELUKAST SODIUM [Concomitant]
     Dosage: UNK, UNKNOWN
     Route: 065
  11. PAROXETINE [Concomitant]
     Dosage: UNK, UNKNOWN
     Route: 065
  12. SENNA [Concomitant]
     Dosage: UNK, UNKNOWN
     Route: 065
  13. TRAMADOL [Concomitant]
     Dosage: UNK, UNKNOWN
     Route: 065
  14. TRAZODONE [Concomitant]
     Dosage: UNK, UNKNOWN
     Route: 065

REACTIONS (6)
  - BLINDNESS [None]
  - EYE PAIN [None]
  - FALL [None]
  - HEAD TITUBATION [None]
  - MUSCLE SPASMS [None]
  - PARTIAL SEIZURES [None]
